FAERS Safety Report 8707450 (Version 5)
Quarter: 2014Q4

REPORT INFORMATION
  Report Type: Spontaneous
  Country: AT (occurrence: AT)
  Receive Date: 20120803
  Receipt Date: 20141204
  Transmission Date: 20150529
  Serious: Yes (Hospitalization)
  Sender: FDA-Public Use
  Company Number: AT-B.I. PHARMACEUTICALS,INC./RIDGEFIELD-2012-EU-03905GD

PATIENT
  Age: 71 Year
  Sex: Female

DRUGS (4)
  1. LEVODOPA/CARBIDOPA/ENTACAPONE [Suspect]
     Active Substance: CARBIDOPA\ENTACAPONE\LEVODOPA
     Dosage: LCVODOPA/CARBIDOPA/ENTACAPONE 100/25/200MG NINE TIMES DAILY
     Route: 065
  2. PRAMIPEXOLE [Suspect]
     Active Substance: PRAMIPEXOLE
     Route: 065
  3. LEVODOPA/CARBIDOPA/ENTACAPONE [Suspect]
     Active Substance: CARBIDOPA\ENTACAPONE\LEVODOPA
     Indication: PARKINSON^S DISEASE
     Dosage: LCVODOPA/CARBIDOPA/ENTACAPONE 100/25/200MG FIVE TIMES DAILY
     Route: 065
     Dates: start: 2008, end: 2010
  4. PRAMIPEXOLE [Suspect]
     Active Substance: PRAMIPEXOLE
     Indication: PARKINSON^S DISEASE
     Route: 065
     Dates: start: 2001

REACTIONS (5)
  - Tremor [Unknown]
  - Dyskinesia [Recovered/Resolved]
  - Drug effect decreased [Recovered/Resolved]
  - Drug dependence [Recovered/Resolved]
  - Dopamine dysregulation syndrome [Recovered/Resolved]

NARRATIVE: CASE EVENT DATE: 2011
